FAERS Safety Report 4987267-6 (Version None)
Quarter: 2006Q2

REPORT INFORMATION
  Report Type: 
  Country: None (occurrence: None)
  Receive Date: 20060501
  Receipt Date: 20051013
  Transmission Date: 20061013
  Serious: Yes (Hospitalization)
  Sender: FDA-Public Use
  Company Number: PR-MERCK-0510USA07418

PATIENT
  Age: 67 Year
  Sex: Female
  Weight: 66 kg

DRUGS (6)
  1. VIOXX [Suspect]
     Indication: MYALGIA
     Route: 048
     Dates: start: 20030101, end: 20040801
  2. GLUCOPHAGE [Concomitant]
     Indication: DIABETES MELLITUS
     Route: 065
  3. SYNTHROID [Concomitant]
     Indication: THYROID DISORDER
     Route: 065
  4. NEURONTIN [Concomitant]
     Route: 065
  5. NOVOLIN [Concomitant]
     Indication: DIABETES MELLITUS
     Route: 065
  6. [THERAPY UNSPECIFIED] [Concomitant]
     Route: 065

REACTIONS (18)
  - ARTERIAL DISORDER [None]
  - BLOOD TRIGLYCERIDES INCREASED [None]
  - BRONCHITIS ACUTE [None]
  - CARDIAC DISORDER [None]
  - CELLULITIS [None]
  - CEREBROVASCULAR ACCIDENT [None]
  - CHEST PAIN [None]
  - CHRONIC OBSTRUCTIVE PULMONARY DISEASE [None]
  - CORONARY ARTERY DISEASE [None]
  - DERMATOMYOSITIS [None]
  - DIABETES MELLITUS NON-INSULIN-DEPENDENT [None]
  - DYSLIPIDAEMIA [None]
  - GASTRITIS [None]
  - GASTROOESOPHAGEAL REFLUX DISEASE [None]
  - HAEMATEMESIS [None]
  - MYOCARDIAL INFARCTION [None]
  - PALPITATIONS [None]
  - VENOUS INSUFFICIENCY [None]
